FAERS Safety Report 5378727-7 (Version None)
Quarter: 2007Q3

REPORT INFORMATION
  Report Type: 
  Country: None (occurrence: None)
  Receive Date: 20070705
  Receipt Date: 20070626
  Transmission Date: 20080115
  Serious: Yes (Other)
  Sender: FDA-Public Use
  Company Number: B0474640A

PATIENT
  Sex: Male

DRUGS (4)
  1. ROPINIROLE HCL [Suspect]
     Indication: PARKINSON'S DISEASE
     Route: 048
     Dates: start: 20020101
  2. SINEMET [Concomitant]
     Dosage: 62.5MG THREE TIMES PER DAY
     Route: 048
     Dates: start: 20020101
  3. LEVODOPA [Concomitant]
     Route: 048
  4. SELEGILINE HCL [Concomitant]
     Route: 065

REACTIONS (4)
  - AGGRESSION [None]
  - GAMBLING [None]
  - LIBIDO INCREASED [None]
  - OBSESSIVE-COMPULSIVE DISORDER [None]
